FAERS Safety Report 6867364-0 (Version None)
Quarter: 2010Q3

REPORT INFORMATION
  Report Type: 
  Country: None (occurrence: None)
  Receive Date: 20100722
  Receipt Date: 20100715
  Transmission Date: 20110219
  Serious: Yes (Other)
  Sender: FDA-Public Use
  Company Number: RS-ROXANE LABORATORIES, INC.-2010-RO-00849RO

PATIENT
  Age: 2 Day

DRUGS (8)
  1. DIGOXIN [Suspect]
     Indication: TACHYCARDIA FOETAL
     Dosage: 0.5 MG
     Route: 064
  2. DIGOXIN [Suspect]
  3. PROPRANOLOL [Suspect]
     Indication: TACHYCARDIA FOETAL
  4. AMIODARONE HCL [Suspect]
     Indication: TACHYCARDIA FOETAL
     Dosage: 1200 MG
     Route: 064
  5. AMIODARONE HCL [Suspect]
     Dosage: 800 MG
     Route: 064
  6. AMIODARONE HCL [Suspect]
     Dosage: 200 MG
     Route: 064
  7. AMIODARONE HCL [Suspect]
     Dosage: 50 MG
  8. AMIODARONE HCL [Suspect]
     Dosage: 100 MG

REACTIONS (11)
  - ATAXIA [None]
  - CARDIAC DISORDER [None]
  - DEVELOPMENTAL DELAY [None]
  - DRUG INEFFECTIVE [None]
  - FOOT DEFORMITY [None]
  - HYPOTONIA [None]
  - MOTOR DEVELOPMENTAL DELAY [None]
  - NEUROTOXICITY [None]
  - NODAL ARRHYTHMIA [None]
  - SPEECH DISORDER DEVELOPMENTAL [None]
  - SUPRAVENTRICULAR TACHYCARDIA [None]
